FAERS Safety Report 25668099 (Version 1)
Quarter: 2025Q3

REPORT INFORMATION
  Report Type: Other
  Country: IN (occurrence: IN)
  Receive Date: 20250812
  Receipt Date: 20250812
  Transmission Date: 20251020
  Serious: Yes (Other)
  Sender: EVEREST LIFE SCIENCES LLC
  Company Number: IN-Everest Life Sciences LLC-2182316

PATIENT
  Age: 27 Year
  Sex: Male

DRUGS (3)
  1. DAPSONE [Suspect]
     Active Substance: DAPSONE
     Indication: Lepromatous leprosy
  2. CLOFAZIMINE [Concomitant]
     Active Substance: CLOFAZIMINE
  3. RIFAMPIN [Concomitant]
     Active Substance: RIFAMPIN

REACTIONS (1)
  - Pancytopenia [Unknown]
